FAERS Safety Report 8698029 (Version 2)
Quarter: 2013Q4

REPORT INFORMATION
  Report Type: Spontaneous
  Country: US (occurrence: US)
  Receive Date: 20120802
  Receipt Date: 20131107
  Transmission Date: 20140711
  Serious: Yes (Other)
  Sender: FDA-Public Use
  Company Number: US-009507513-1207USA009949

PATIENT
  Sex: Female

DRUGS (3)
  1. ZOCOR [Suspect]
     Route: 048
  2. ATORVASTATIN CALCIUM [Suspect]
  3. PRAVASTATIN SODIUM [Suspect]

REACTIONS (11)
  - Pain [Unknown]
  - Feeling abnormal [Unknown]
  - Suicidal ideation [Unknown]
  - Pharyngeal oedema [Unknown]
  - Erythema [Unknown]
  - Malaise [Unknown]
  - Nausea [Unknown]
  - Dyspepsia [Unknown]
  - Constipation [Unknown]
  - Rash [Unknown]
  - Pruritus generalised [Unknown]
